FAERS Safety Report 4488719-8 (Version None)
Quarter: 2004Q4

REPORT INFORMATION
  Report Type: 
  Country: None (occurrence: None)
  Receive Date: 20041025
  Receipt Date: 20041011
  Transmission Date: 20050328
  Serious: Yes (Death, Hospitalization, Other)
  Sender: FDA-Public Use
  Company Number: 2004058212

PATIENT
  Age: 83 Year
  Sex: Female

DRUGS (2)
  1. DIABINESE [Suspect]
     Indication: DIABETES MELLITUS
     Dosage: ORAL   } 10 YRS.
     Route: 048
  2. ALL OTHER THERAPEUTIC PRODUCTS (ALL OTHER THERAPEUTIC PRODUCTS) [Concomitant]

REACTIONS (6)
  - CARDIAC FAILURE [None]
  - DELIRIUM [None]
  - DIALYSIS [None]
  - DYSPHONIA [None]
  - HYPOGLYCAEMIA [None]
  - RENAL FAILURE [None]
